FAERS Safety Report 24969048 (Version 2)
Quarter: 2025Q1

REPORT INFORMATION
  Report Type: Spontaneous
  Country: FR (occurrence: FR)
  Receive Date: 20250214
  Receipt Date: 20250224
  Transmission Date: 20250409
  Serious: Yes (Death, Other)
  Sender: JOHNSON AND JOHNSON
  Company Number: FR-JNJFOC-20250213888

PATIENT

DRUGS (4)
  1. RYBREVANT [Suspect]
     Active Substance: AMIVANTAMAB-VMJW
     Indication: Product used for unknown indication
     Route: 065
     Dates: end: 20241107
  2. RYBREVANT [Suspect]
     Active Substance: AMIVANTAMAB-VMJW
     Route: 065
     Dates: start: 20241212, end: 20241226
  3. CARBOPLATIN [Concomitant]
     Active Substance: CARBOPLATIN
     Dates: end: 20241107
  4. PEMETREXED [Concomitant]
     Active Substance: PEMETREXED
     Dates: end: 20241107

REACTIONS (4)
  - Disease progression [Fatal]
  - Haematotoxicity [Unknown]
  - Thrombocytopenia [Unknown]
  - Mucosal inflammation [Unknown]
